FAERS Safety Report 8015847-2 (Version None)
Quarter: 2011Q4

REPORT INFORMATION
  Report Type: 
  Country: None (occurrence: None)
  Receive Date: 20111223
  Receipt Date: 20111214
  Transmission Date: 20120403
  Serious: Yes (Hospitalization)
  Sender: FDA-Public Use
  Company Number: DSJ-2011-16506

PATIENT
  Age: 79 Year
  Sex: Male

DRUGS (8)
  1. ACETYLSALICYLIC ACID SRT [Concomitant]
  2. ROSUVASTATIN 9FOSUVASTATIN) (ROSUVASTATIN) [Concomitant]
  3. LEVOTHYROXINE SODIUM [Concomitant]
  4. OMEPRAZOLE [Concomitant]
  5. METFORMIN HCL [Concomitant]
  6. SIMVASTATIN/EZETIMIBE (SIMVASTATIN, EZETIMIBE) (SIMVASTATIN, EZETIMIBE [Concomitant]
  7. BENICAR [Suspect]
     Indication: HYPERTENSION
     Dosage: 40 MG (40 MG, 1 IN 1 D), PER ORAL
     Route: 048
     Dates: start: 20080101, end: 20110101
  8. BISOPROLOL FUMARATE [Concomitant]

REACTIONS (5)
  - SYNCOPE [None]
  - MENINGIOMA [None]
  - HYPOTENSION [None]
  - CEREBRAL THROMBOSIS [None]
  - THROMBOSIS [None]
